FAERS Safety Report 9830543 (Version 1)
Quarter: 2014Q1

REPORT INFORMATION
  Report Type: Spontaneous
  Country: US (occurrence: US)
  Receive Date: 20140120
  Receipt Date: 20140120
  Transmission Date: 20141002
  Serious: Yes (Hospitalization, Other)
  Sender: FDA-Public Use
  Company Number: US-BRISTOL-MYERS SQUIBB COMPANY-20018172

PATIENT
  Age: 74 Year
  Sex: Female
  Weight: 76.64 kg

DRUGS (2)
  1. ONGLYZA TABS [Suspect]
     Indication: TYPE 2 DIABETES MELLITUS
     Dates: start: 2011
  2. GLYBURIDE [Concomitant]

REACTIONS (2)
  - Gastrooesophageal reflux disease [Unknown]
  - Granuloma annulare [Unknown]
